FAERS Safety Report 12434228 (Version 1)
Quarter: 2016Q2

REPORT INFORMATION
  Report Type: Spontaneous
  Country: US (occurrence: US)
  Receive Date: 20160603
  Receipt Date: 20160603
  Transmission Date: 20160815
  Serious: No
  Sender: FDA-Public Use
  Company Number: US-TEVA-664991USA

PATIENT
  Sex: Male

DRUGS (10)
  1. PROVIGIL [Suspect]
     Active Substance: MODAFINIL
     Indication: SOMNOLENCE
  2. IRBESARTAN. [Concomitant]
     Active Substance: IRBESARTAN
     Indication: BLOOD PRESSURE MEASUREMENT
  3. NUVIGIL [Suspect]
     Active Substance: ARMODAFINIL
     Indication: HEADACHE
  4. PROVIGIL [Suspect]
     Active Substance: MODAFINIL
     Indication: FATIGUE
  5. NUVIGIL [Suspect]
     Active Substance: ARMODAFINIL
     Indication: SOMNOLENCE
  6. MODAFINIL. [Suspect]
     Active Substance: MODAFINIL
     Indication: SOMNOLENCE
  7. MODAFINIL. [Suspect]
     Active Substance: MODAFINIL
     Indication: FATIGUE
  8. PROVIGIL [Suspect]
     Active Substance: MODAFINIL
     Indication: HEADACHE
  9. MODAFINIL. [Suspect]
     Active Substance: MODAFINIL
     Indication: HEADACHE
  10. NUVIGIL [Suspect]
     Active Substance: ARMODAFINIL
     Indication: FATIGUE

REACTIONS (2)
  - Therapeutic response unexpected [Unknown]
  - Product use issue [Unknown]
